FAERS Safety Report 21887677 (Version 2)
Quarter: 2023Q1

REPORT INFORMATION
  Report Type: Report from Study
  Country: US (occurrence: US)
  Receive Date: 20230120
  Receipt Date: 20230201
  Transmission Date: 20230417
  Serious: No
  Sender: FDA-Public Use
  Company Number: US-ABBVIE-4244335

PATIENT
  Sex: Female

DRUGS (1)
  1. HUMIRA [Suspect]
     Active Substance: ADALIMUMAB
     Indication: Psoriasis
     Dosage: ONSET FOR EVENT HANDS INFLAMMED AND ITCHING WAS 2022
     Route: 058
     Dates: start: 20220913

REACTIONS (3)
  - Inflammation [Not Recovered/Not Resolved]
  - Psoriasis [Unknown]
  - Drug ineffective [Unknown]
